FAERS Safety Report 5623198-6 (Version None)
Quarter: 2008Q1

REPORT INFORMATION
  Report Type: 
  Country: None (occurrence: None)
  Receive Date: 20080212
  Receipt Date: 20080208
  Transmission Date: 20080703
  Serious: Yes (Other)
  Sender: FDA-Public Use
  Company Number: JP-BAYER-200810223BYL

PATIENT
  Age: 85 Year
  Sex: Female

DRUGS (1)
  1. ASPIRIN [Suspect]
     Dosage: UNIT DOSE: 100 MG
     Route: 048

REACTIONS (1)
  - LIVER DISORDER [None]
